FAERS Safety Report 7406870-7 (Version None)
Quarter: 2011Q2

REPORT INFORMATION
  Report Type: 
  Country: None (occurrence: None)
  Receive Date: 20110411
  Receipt Date: 20110314
  Transmission Date: 20111010
  Serious: No
  Sender: FDA-Public Use
  Company Number: US-BAUSCH-2011BL001698

PATIENT
  Age: 10 Year
  Sex: Male

DRUGS (1)
  1. ZIRGAN [Suspect]
     Indication: HERPES SIMPLEX OPHTHALMIC
     Route: 047
     Dates: start: 20110101, end: 20110101

REACTIONS (1)
  - DACRYOSTENOSIS ACQUIRED [None]
